FAERS Safety Report 10735671 (Version 2)
Quarter: 2015Q1

REPORT INFORMATION
  Report Type: Spontaneous
  Country: JP (occurrence: JP)
  Receive Date: 20150126
  Receipt Date: 20150223
  Transmission Date: 20150721
  Serious: Yes (Other)
  Sender: FDA-Public Use
  Company Number: JP-PFIZER INC-2014349101

PATIENT
  Age: 86 Year
  Sex: Male

DRUGS (9)
  1. MUCODYNE [Concomitant]
     Active Substance: CARBOCYSTEINE
  2. MAGMITT [Concomitant]
     Active Substance: MAGNESIUM OXIDE
  3. TOVIAZ [Suspect]
     Active Substance: FESOTERODINE FUMARATE
     Dosage: 8 MG, DAILY
     Route: 048
     Dates: start: 20141022
  4. AMOXAN [Concomitant]
     Active Substance: AMOXAPINE
  5. SENNOSIDE [Concomitant]
     Active Substance: SENNOSIDES
  6. TOVIAZ [Suspect]
     Active Substance: FESOTERODINE FUMARATE
     Dosage: 4 MG, DAILY
     Route: 048
     Dates: start: 20140813, end: 20141021
  7. PANVITAN [Concomitant]
  8. DEPAS [Concomitant]
     Active Substance: ETIZOLAM
  9. RHYTHMY [Concomitant]
     Active Substance: RILMAZAFONE HYDROCHLORIDE

REACTIONS (3)
  - Vision blurred [Recovered/Resolved]
  - Cognitive disorder [Recovered/Resolved]
  - Erythropsia [Recovered/Resolved]

NARRATIVE: CASE EVENT DATE: 20141125
